FAERS Safety Report 4745659-4 (Version None)
Quarter: 2005Q3

REPORT INFORMATION
  Report Type: 
  Country: None (occurrence: None)
  Receive Date: 20050811
  Receipt Date: 20050802
  Transmission Date: 20060218
  Serious: Yes (Hospitalization)
  Sender: FDA-Public Use
  Company Number: 2005110361

PATIENT
  Age: 2 Year
  Sex: Male

DRUGS (1)
  1. ATARAX [Suspect]
     Indication: ILL-DEFINED DISORDER
     Dosage: 16 MG, ORAL
     Route: 048
     Dates: start: 20050615, end: 20050615

REACTIONS (3)
  - ABNORMAL DREAMS [None]
  - AGITATION [None]
  - HALLUCINATION [None]
